FAERS Safety Report 17086523 (Version 3)
Quarter: 2020Q1

REPORT INFORMATION
  Report Type: Report from Study
  Country: ES (occurrence: ES)
  Receive Date: 20191128
  Receipt Date: 20200220
  Transmission Date: 20200409
  Serious: Yes (Hospitalization)
  Sender: FDA-Public Use
  Company Number: ES-ROCHE-2478438

PATIENT
  Age: 67 Year
  Sex: Male
  Weight: 79 kg

DRUGS (3)
  1. BEVACIZUMAB. [Suspect]
     Active Substance: BEVACIZUMAB
     Indication: PLEURAL MESOTHELIOMA MALIGNANT
     Dosage: ON 31/OCT/2019 LAST DOSE OF BEVACIZUMAB PRIOR TO SAE
     Route: 042
     Dates: start: 20191010
  2. PEMETREXED. [Suspect]
     Active Substance: PEMETREXED
     Indication: PLEURAL MESOTHELIOMA MALIGNANT
     Dosage: ON 31/OCT/2019 LAST DOSE OF PREMETAXED PRIOR TO SAE
     Route: 065
     Dates: start: 20191010, end: 20191128
  3. CARBOPLATIN. [Suspect]
     Active Substance: CARBOPLATIN
     Indication: PLEURAL MESOTHELIOMA MALIGNANT
     Dosage: ON 31/OCT/2019 LAST DOSE OF CARBOPLATIN PRIOR TO SAE
     Route: 065
     Dates: start: 20191010, end: 20191128

REACTIONS (3)
  - Platelet count decreased [Recovered/Resolved]
  - Ill-defined disorder [Not Recovered/Not Resolved]
  - Gastric ulcer [Recovered/Resolved]

NARRATIVE: CASE EVENT DATE: 20191114
